FAERS Safety Report 19154580 (Version 3)
Quarter: 2021Q3

REPORT INFORMATION
  Report Type: Report from Study
  Country: CO (occurrence: CO)
  Receive Date: 20210419
  Receipt Date: 20210809
  Transmission Date: 20211014
  Serious: Yes (Other)
  Sender: FDA-Public Use
  Company Number: CO-BRISTOL-MYERS SQUIBB COMPANY-BMS-2021-036297

PATIENT
  Age: 61 Year
  Sex: Male
  Weight: 86 kg

DRUGS (1)
  1. ABATACEPT [Suspect]
     Active Substance: ABATACEPT
     Indication: RHEUMATOID ARTHRITIS
     Dosage: 125 MILLIGRAM EVERY 15 DAYS
     Route: 058
     Dates: start: 20190422

REACTIONS (3)
  - Hepatic steatosis [Recovering/Resolving]
  - Off label use [Recovering/Resolving]
  - Portal vein thrombosis [Unknown]

NARRATIVE: CASE EVENT DATE: 20210406
